FAERS Safety Report 4828047-1 (Version None)
Quarter: 2005Q4

REPORT INFORMATION
  Report Type: 
  Country: None (occurrence: None)
  Receive Date: 20051110
  Receipt Date: 20051028
  Transmission Date: 20060501
  Serious: Yes (Hospitalization, Other)
  Sender: FDA-Public Use
  Company Number: 2005148253

PATIENT
  Age: 26 Year
  Sex: Female

DRUGS (2)
  1. ZMAX [Suspect]
     Indication: EAR PAIN
     Dosage: 2 GRAM (2 GRAM, 1 IN 1 TOTAL), ORAL
     Route: 048
     Dates: start: 20051005, end: 20051005
  2. BENADRYL [Suspect]
     Indication: ILL-DEFINED DISORDER
     Dates: start: 20051005

REACTIONS (5)
  - DIARRHOEA [None]
  - DYSPNOEA [None]
  - HYPERHIDROSIS [None]
  - TACHYCARDIA [None]
  - TREMOR [None]
